FAERS Safety Report 14703136 (Version 2)
Quarter: 2018Q2

REPORT INFORMATION
  Report Type: Spontaneous
  Country: US (occurrence: US)
  Receive Date: 20180402
  Receipt Date: 20180509
  Transmission Date: 20180711
  Serious: Yes (Hospitalization)
  Sender: FDA-Public Use
  Company Number: US-ACCORD-065053

PATIENT
  Sex: Male
  Weight: 124.7 kg

DRUGS (4)
  1. TRAMADOL. [Concomitant]
     Active Substance: TRAMADOL
     Dates: start: 20171220
  2. HYDROCHLOROTHIAZIDE/SPIRONOLACTONE [Suspect]
     Active Substance: HYDROCHLOROTHIAZIDE\SPIRONOLACTONE
     Indication: PRODUCT USED FOR UNKNOWN INDICATION
     Dates: start: 20160315, end: 20180125
  3. ALLOPURINOL. [Suspect]
     Active Substance: ALLOPURINOL
     Indication: PRODUCT USED FOR UNKNOWN INDICATION
     Dates: start: 20120814, end: 201801
  4. REGORAFENIB. [Suspect]
     Active Substance: REGORAFENIB
     Indication: PRODUCT USED FOR UNKNOWN INDICATION
     Dates: start: 20180305

REACTIONS (15)
  - Blood creatinine increased [Recovered/Resolved]
  - Urosepsis [Not Recovered/Not Resolved]
  - Asthenia [Not Recovered/Not Resolved]
  - Tachycardia [Unknown]
  - Condition aggravated [Recovered/Resolved]
  - Sepsis [Not Recovered/Not Resolved]
  - Urinary incontinence [Unknown]
  - Arthralgia [Unknown]
  - Dysuria [Unknown]
  - Neck pain [Recovering/Resolving]
  - Hyperkalaemia [Not Recovered/Not Resolved]
  - Acute respiratory failure [Not Recovered/Not Resolved]
  - Gouty arthritis [Recovering/Resolving]
  - Metastases to spine [Not Recovered/Not Resolved]
  - Oedema [Unknown]

NARRATIVE: CASE EVENT DATE: 20170924
